FAERS Safety Report 26195383 (Version 2)
Quarter: 2025Q4

REPORT INFORMATION
  Report Type: Spontaneous
  Country: US (occurrence: US)
  Receive Date: 20251224
  Receipt Date: 20251230
  Transmission Date: 20260118
  Serious: Yes (Life-Threatening, Hospitalization, Other)
  Sender: PFIZER
  Company Number: US-MLMSERVICE-20251204-PI739489-00200-2

PATIENT
  Age: 62 Year
  Sex: Female

DRUGS (1)
  1. LEVOTHYROXINE SODIUM [Suspect]
     Active Substance: LEVOTHYROXINE SODIUM
     Indication: Hypothyroidism
     Dosage: UNK
     Route: 042

REACTIONS (5)
  - Cardiogenic shock [Recovering/Resolving]
  - Dilated cardiomyopathy [Recovering/Resolving]
  - Ejection fraction decreased [Recovering/Resolving]
  - Condition aggravated [Recovering/Resolving]
  - Pulmonary oedema [Recovering/Resolving]
